FAERS Safety Report 22309848 (Version 1)
Quarter: 2023Q2

REPORT INFORMATION
  Report Type: Spontaneous
  Country: US (occurrence: None)
  Receive Date: 20230510
  Receipt Date: 20230510
  Transmission Date: 20230721
  Serious: No
  Sender: FDA-Public Use
  Company Number: None

PATIENT
  Age: 28 Year
  Sex: Male

DRUGS (1)
  1. LEXAPRO [Suspect]
     Active Substance: ESCITALOPRAM OXALATE
     Indication: Major depression

REACTIONS (5)
  - Irritability [None]
  - Hypersexuality [None]
  - Manic symptom [None]
  - Economic problem [None]
  - Personal relationship issue [None]

NARRATIVE: CASE EVENT DATE: 20230509
